FAERS Safety Report 19742206 (Version 3)
Quarter: 2021Q4

REPORT INFORMATION
  Report Type: Report from Study
  Country: US (occurrence: US)
  Receive Date: 20210825
  Receipt Date: 20211013
  Transmission Date: 20220303
  Serious: No
  Sender: FDA-Public Use
  Company Number: NVSC2021US189856

PATIENT
  Sex: Male

DRUGS (1)
  1. ENTRESTO [Suspect]
     Active Substance: SACUBITRIL\VALSARTAN
     Indication: Product used for unknown indication
     Dosage: UNK UNK, BID
     Route: 048
     Dates: start: 202107

REACTIONS (5)
  - Somnolence [Unknown]
  - Hypoaesthesia [Unknown]
  - Abnormal behaviour [Unknown]
  - COVID-19 [Unknown]
  - Inappropriate schedule of product administration [Unknown]
